FAERS Safety Report 9783646 (Version 1)
Quarter: 2013Q4

REPORT INFORMATION
  Report Type: Spontaneous
  Country: AU (occurrence: None)
  Receive Date: 20131223
  Receipt Date: 20131223
  Transmission Date: 20140711
  Serious: Yes (Other)
  Sender: FDA-Public Use
  Company Number: 2013000354

PATIENT
  Sex: Female

DRUGS (2)
  1. ACEON [Suspect]
     Indication: PRODUCT USED FOR UNKNOWN INDICATION
  2. AGON (FELODIPINE) [Concomitant]

REACTIONS (2)
  - Respiratory failure [None]
  - Laryngeal oedema [None]
